FAERS Safety Report 24146525 (Version 1)
Quarter: 2024Q3

REPORT INFORMATION
  Report Type: Spontaneous
  Country: FR (occurrence: FR)
  Receive Date: 20240729
  Receipt Date: 20240729
  Transmission Date: 20241017
  Serious: Yes (Hospitalization)
  Sender: NOVARTIS
  Company Number: None

PATIENT
  Age: 34 Year
  Sex: Male

DRUGS (5)
  1. MEKINIST [Suspect]
     Active Substance: TRAMETINIB DIMETHYL SULFOXIDE
     Indication: Metastatic malignant melanoma
     Dosage: 2 MG, QD (INITIALEMENT 2MG/J)
     Route: 048
     Dates: start: 20190111, end: 202204
  2. MEKINIST [Suspect]
     Active Substance: TRAMETINIB DIMETHYL SULFOXIDE
     Dosage: UNK (INITIALLY 2MG/DAY THEN RESUMED AT AN UNKNOWN DOSAGE)
     Route: 048
     Dates: start: 20220428, end: 202205
  3. TAFINLAR [Suspect]
     Active Substance: DABRAFENIB MESYLATE
     Indication: Metastatic malignant melanoma
     Dosage: 300 MG, QD
     Route: 048
     Dates: start: 20190111, end: 202204
  4. TAFINLAR [Suspect]
     Active Substance: DABRAFENIB MESYLATE
     Dosage: UNK (NITIALEMENT 75MG 2-0-2, PUIS REPRISE ? UNE POSOLOGIE NON CONNUE)
     Route: 048
     Dates: start: 20220428, end: 202205
  5. KEYTRUDA [Suspect]
     Active Substance: PEMBROLIZUMAB
     Indication: Metastatic malignant melanoma
     Dosage: 400 MG (6 PER WEEK)
     Route: 042
     Dates: start: 20200206, end: 20220303

REACTIONS (2)
  - Drug-induced liver injury [Not Recovered/Not Resolved]
  - Colitis [Not Recovered/Not Resolved]

NARRATIVE: CASE EVENT DATE: 20220522
